FAERS Safety Report 6371880-8 (Version None)
Quarter: 2009Q3

REPORT INFORMATION
  Report Type: 
  Country: None (occurrence: None)
  Receive Date: 20090923
  Receipt Date: 20090915
  Transmission Date: 20100115
  Serious: Yes (Other)
  Sender: FDA-Public Use
  Company Number: PHHY2009DE40038

PATIENT
  Age: 63 Year
  Sex: Male

DRUGS (1)
  1. RASILEZ HCT [Suspect]
     Indication: HYPERTENSION
     Dosage: 1 DF, QD
     Route: 048
     Dates: start: 20090801, end: 20090914

REACTIONS (1)
  - BLOOD PRESSURE INCREASED [None]
